FAERS Safety Report 4831701-9 (Version None)
Quarter: 2005Q4

REPORT INFORMATION
  Report Type: 
  Country: None (occurrence: None)
  Receive Date: 20051118
  Receipt Date: 20051110
  Transmission Date: 20060501
  Serious: Yes (Hospitalization, Other)
  Sender: FDA-Public Use
  Company Number: US-MERCK-0511USA01913

PATIENT
  Age: 44 Year
  Sex: Female
  Weight: 64 kg

DRUGS (6)
  1. VIOXX [Suspect]
     Indication: NECK PAIN
     Route: 048
     Dates: start: 20010801, end: 20031218
  2. VIOXX [Suspect]
     Route: 048
     Dates: start: 20010801, end: 20031218
  3. VIOXX [Suspect]
     Indication: BACK PAIN
     Route: 048
     Dates: start: 20010801, end: 20031218
  4. VIOXX [Suspect]
     Route: 048
     Dates: start: 20010801, end: 20031218
  5. COVERA-HS [Concomitant]
     Route: 065
  6. XANAX [Concomitant]
     Route: 065

REACTIONS (5)
  - ANXIETY [None]
  - CARDIAC DISORDER [None]
  - DEPRESSION [None]
  - MYOCARDIAL INFARCTION [None]
  - PRESCRIBED OVERDOSE [None]
